FAERS Safety Report 6981782-1 (Version None)
Quarter: 2010Q3

REPORT INFORMATION
  Report Type: 
  Country: None (occurrence: None)
  Receive Date: 20100914
  Receipt Date: 20091102
  Transmission Date: 20110219
  Serious: No
  Sender: FDA-Public Use
  Company Number: US-PFIZER INC-2009253083

PATIENT
  Sex: Female
  Weight: 49.9 kg

DRUGS (6)
  1. LYRICA [Suspect]
     Indication: FIBROMYALGIA
     Dosage: 150 MG, 2X/DAY
     Route: 048
     Dates: start: 20090701
  2. LYRICA [Suspect]
     Indication: ABDOMINAL ADHESIONS
  3. CYMBALTA [Concomitant]
  4. ULTRAM [Concomitant]
  5. BACLOFEN [Concomitant]
  6. MAXALT [Concomitant]

REACTIONS (1)
  - DRUG SCREEN POSITIVE [None]
